FAERS Safety Report 4984575-X (Version None)
Quarter: 2006Q2

REPORT INFORMATION
  Report Type: 
  Country: None (occurrence: None)
  Receive Date: 20060420
  Receipt Date: 20060413
  Transmission Date: 20061013
  Serious: Yes (Other)
  Sender: FDA-Public Use
  Company Number: HQWYE822213APR06

PATIENT
  Age: 77 Year
  Sex: Female

DRUGS (2)
  1. CORDARONE [Suspect]
     Dosage: 200 MG ORAL
     Route: 048
  2. AMIODARONE HCL [Suspect]
     Dosage: INTRAVENOUS
     Route: 042

REACTIONS (1)
  - HALLUCINATION, VISUAL [None]
